FAERS Safety Report 21604065 (Version 1)
Quarter: 2022Q4

REPORT INFORMATION
  Report Type: Spontaneous
  Country: US (occurrence: None)
  Receive Date: 20221116
  Receipt Date: 20221116
  Transmission Date: 20230112
  Serious: Yes (unspecified)
  Sender: FDA-Public Use
  Company Number: None

PATIENT
  Age: 54 Year
  Sex: Female

DRUGS (1)
  1. CANNABIDIOL\HERBALS [Suspect]
     Active Substance: CANNABIDIOL\HERBALS

REACTIONS (5)
  - Blood pressure decreased [None]
  - Syncope [None]
  - Retching [None]
  - Abdominal discomfort [None]
  - Refusal of treatment by patient [None]

NARRATIVE: CASE EVENT DATE: 20221029
